FAERS Safety Report 6049226-4 (Version None)
Quarter: 2009Q1

REPORT INFORMATION
  Report Type: 
  Country: None (occurrence: None)
  Receive Date: 20090123
  Receipt Date: 20090108
  Transmission Date: 20090719
  Serious: Yes (Hospitalization)
  Sender: FDA-Public Use
  Company Number: US-GENENTECH-275603

PATIENT
  Sex: Male

DRUGS (3)
  1. BEVACIZUMAB [Suspect]
     Indication: COLON CANCER
     Dosage: 780 MG, Q3W
     Route: 042
     Dates: start: 20070328, end: 20080213
  2. OXALIPLATIN [Suspect]
     Indication: COLON CANCER
     Dosage: 285 MG, Q3W
     Route: 042
     Dates: start: 20070328, end: 20070530
  3. CAPECITABINE [Suspect]
     Indication: COLON CANCER
     Dosage: 2000 MG/M2, Q2W
     Route: 048
     Dates: start: 20070328, end: 20070907

REACTIONS (1)
  - CORONARY ARTERY DISEASE [None]
